FAERS Safety Report 4624256-5 (Version None)
Quarter: 2005Q1

REPORT INFORMATION
  Report Type: 
  Country: None (occurrence: None)
  Receive Date: 20050330
  Receipt Date: 20050330
  Transmission Date: 20050727
  Serious: No
  Sender: FDA-Public Use
  Company Number: None

PATIENT
  Age: 35 Year
  Sex: Female

DRUGS (11)
  1. CEFEPIME HYDROCHLORIDE [Suspect]
     Indication: CONVULSION
     Dosage: 2 GRAMS IV ONCE DAILY
     Route: 042
  2. ACYCLOVIR [Concomitant]
  3. CIPROFLOXACIN [Concomitant]
  4. VANCOMYCIN HYDROCHLORIDE [Concomitant]
  5. METOPROLOL TARTRATE [Concomitant]
  6. PANTOPRAZOLE SODIUM [Concomitant]
  7. DEXAMETHASONE [Concomitant]
  8. DARBEPOETIN [Concomitant]
  9. HEPARIN SODIUM [Concomitant]
  10. MIDAZOLAM HYDROCHLORIDE [Concomitant]
  11. LORAZEPAM [Concomitant]

REACTIONS (2)
  - CONVULSION [None]
  - MUSCLE TWITCHING [None]
